FAERS Safety Report 5763044-3 (Version None)
Quarter: 2008Q2

REPORT INFORMATION
  Report Type: 
  Country: None (occurrence: None)
  Receive Date: 20080609
  Receipt Date: 20080609
  Transmission Date: 20081010
  Serious: Yes (Death, Hospitalization)
  Sender: FDA-Public Use
  Company Number: MX-ABBOTT-08P-107-0455073-00

PATIENT

DRUGS (2)
  1. KALETRA [Suspect]
     Indication: HIV INFECTION
     Dosage: TWO 400/100MG TWICE DAILY
     Dates: start: 20060417
  2. METOCLOPRAMIDE [Concomitant]
     Indication: DRUG USE FOR UNKNOWN INDICATION

REACTIONS (8)
  - DEHYDRATION [None]
  - DIARRHOEA [None]
  - GASTROENTERITIS [None]
  - GENERAL PHYSICAL CONDITION ABNORMAL [None]
  - HYPOVOLAEMIC SHOCK [None]
  - MUCOSAL DRYNESS [None]
  - NAUSEA [None]
  - VOMITING [None]
